FAERS Safety Report 10231446 (Version 2)
Quarter: 2014Q2

REPORT INFORMATION
  Report Type: Spontaneous
  Country: PL (occurrence: PL)
  Receive Date: 20140611
  Receipt Date: 20140624
  Transmission Date: 20141212
  Serious: Yes (Other)
  Sender: FDA-Public Use
  Company Number: PL-BAXTER-2014BAX028762

PATIENT
  Age: 14 Year
  Sex: Male

DRUGS (10)
  1. MANNITOL 20% BAXTER [Suspect]
     Indication: ULCERATIVE KERATITIS
     Route: 065
  2. MANNITOL 20% BAXTER [Suspect]
     Indication: OFF LABEL USE
  3. DIFLUCAN [Suspect]
     Indication: ULCERATIVE KERATITIS
     Route: 065
  4. BIODACYNA [Suspect]
     Indication: ULCERATIVE KERATITIS
     Route: 065
  5. DEXAMETHASONE [Suspect]
     Indication: ULCERATIVE KERATITIS
     Route: 065
  6. BIOFAZOLINE [Suspect]
     Indication: ULCERATIVE KERATITIS
     Route: 065
  7. METRONIDAZOLE [Suspect]
     Indication: ULCERATIVE KERATITIS
     Route: 065
  8. AMOKSIKLAV [Suspect]
     Indication: ULCERATIVE KERATITIS
     Route: 065
  9. BIOFUROKSYM [Suspect]
     Indication: ULCERATIVE KERATITIS
     Route: 065
  10. DIURAMID [Suspect]
     Indication: ULCERATIVE KERATITIS
     Route: 065

REACTIONS (1)
  - Drug ineffective [Not Recovered/Not Resolved]
